FAERS Safety Report 7144326-X (Version None)
Quarter: 2010Q4

REPORT INFORMATION
  Report Type: 
  Country: None (occurrence: None)
  Receive Date: 20101208
  Receipt Date: 20101108
  Transmission Date: 20110411
  Serious: No
  Sender: FDA-Public Use
  Company Number: US-BAYER-2010-001038

PATIENT
  Sex: Female
  Weight: 51 kg

DRUGS (6)
  1. MIDOL PM [Suspect]
     Indication: ABDOMINAL PAIN
     Dosage: UNK
     Dates: start: 20101107
  2. FLINTSTONES COMPLETE [Concomitant]
     Dosage: UNK
  3. DESOGESTREL AND ETHINYL ESTRADIOL [Concomitant]
  4. TRIAMTERENE AND HYDROCHLOROTHIAZIDE [Concomitant]
  5. ZYRTEC-D 12 HOUR [Concomitant]
  6. IBUPROFEN [Concomitant]
     Dosage: 800 MG, UNK

REACTIONS (4)
  - EAR PRURITUS [None]
  - ERYTHEMA [None]
  - INSOMNIA [None]
  - PRURITUS [None]
